FAERS Safety Report 4907985-5 (Version None)
Quarter: 2006Q1

REPORT INFORMATION
  Report Type: 
  Country: None (occurrence: None)
  Receive Date: 20060207
  Receipt Date: 20060204
  Transmission Date: 20060701
  Serious: Yes (Other)
  Sender: FDA-Public Use
  Company Number: 219358

PATIENT
  Age: 52 Year
  Sex: Female
  Weight: 81 kg

DRUGS (1)
  1. XOLAIR (OMALIZUMAB)PWDR + SOLVENT, INJECTION SOLN, 150MG [Suspect]
     Indication: ASTHMA
     Dosage: 150 MG, SUBCUTANEOUS
     Route: 058

REACTIONS (3)
  - ANAPHYLACTIC REACTION [None]
  - HEADACHE [None]
  - PHARYNGOLARYNGEAL PAIN [None]
